FAERS Safety Report 20379091 (Version 1)
Quarter: 2022Q1

REPORT INFORMATION
  Report Type: Spontaneous
  Country: US (occurrence: US)
  Receive Date: 20220126
  Receipt Date: 20220126
  Transmission Date: 20220423
  Serious: No
  Sender: FDA-Public Use
  Company Number: US-PFIZER INC-202101481803

PATIENT
  Age: 83 Year
  Sex: Female
  Weight: 63.5 kg

DRUGS (2)
  1. PREMARIN [Suspect]
     Active Substance: ESTROGENS, CONJUGATED
     Indication: Hormone replacement therapy
     Dosage: 0.3 ONE PER DAILY
  2. PREMARIN [Suspect]
     Active Substance: ESTROGENS, CONJUGATED
     Indication: Hysterectomy

REACTIONS (3)
  - Visual impairment [Unknown]
  - Withdrawal syndrome [Unknown]
  - Intentional product misuse [Unknown]
